FAERS Safety Report 23221328 (Version 5)
Quarter: 2023Q4

REPORT INFORMATION
  Report Type: Report from Study
  Country: CA (occurrence: CA)
  Receive Date: 20231123
  Receipt Date: 20231227
  Transmission Date: 20240110
  Serious: Yes (Hospitalization, Other)
  Sender: FDA-Public Use
  Company Number: CA-TAKEDA-2021TUS039764

PATIENT
  Age: 65 Year
  Sex: Male

DRUGS (7)
  1. LANADELUMAB [Suspect]
     Active Substance: LANADELUMAB
     Indication: Hereditary angioedema with C1 esterase inhibitor deficiency
     Dosage: UNK UNK, Q2WEEKS
     Route: 065
     Dates: start: 20201014
  2. LANADELUMAB [Suspect]
     Active Substance: LANADELUMAB
     Dosage: UNK, Q4WEEKS
     Route: 058
  3. LANADELUMAB [Suspect]
     Active Substance: LANADELUMAB
     Dosage: 2 DOSAGE FORM, Q2WEEKS
     Route: 050
  4. LANADELUMAB [Suspect]
     Active Substance: LANADELUMAB
     Dosage: 2 DOSAGE FORM, Q4WEEKS
     Route: 050
  5. BERINERT [Concomitant]
     Active Substance: HUMAN C1-ESTERASE INHIBITOR
     Dosage: UNK
     Route: 065
  6. DANAZOL [Concomitant]
     Active Substance: DANAZOL
     Dosage: UNK
     Route: 065
  7. FIRAZYR [Concomitant]
     Active Substance: ICATIBANT ACETATE
     Dosage: UNK
     Route: 065
     Dates: start: 20170221

REACTIONS (11)
  - Illness [Unknown]
  - Blood iron decreased [Unknown]
  - Malaise [Unknown]
  - General physical health deterioration [Not Recovered/Not Resolved]
  - Vomiting [Not Recovered/Not Resolved]
  - Haematemesis [Not Recovered/Not Resolved]
  - Aspiration [Not Recovered/Not Resolved]
  - Confusional state [Not Recovered/Not Resolved]
  - Hereditary angioedema [Unknown]
  - Product dose omission issue [Unknown]
  - Product use in unapproved indication [Unknown]

NARRATIVE: CASE EVENT DATE: 20201014
